FAERS Safety Report 4398963-6 (Version None)
Quarter: 2004Q3

REPORT INFORMATION
  Report Type: 
  Country: None (occurrence: None)
  Receive Date: 20040715
  Receipt Date: 20040628
  Transmission Date: 20050211
  Serious: Yes (Hospitalization, Disabling)
  Sender: FDA-Public Use
  Company Number: JP-MERCK-0406USA02671

PATIENT
  Age: 86 Year
  Sex: Male
  Weight: 26 kg

DRUGS (9)
  1. AMLODIN [Concomitant]
     Indication: ANGINA PECTORIS
     Route: 048
  2. 8-HOUR BAYER [Concomitant]
     Indication: ANGINA PECTORIS
     Route: 048
     Dates: start: 19991101
  3. DIART [Concomitant]
     Indication: CARDIAC FAILURE
     Route: 048
     Dates: start: 20030901
  4. DIART [Concomitant]
     Indication: HYPERTONIA
     Route: 048
     Dates: start: 20030901
  5. FLUTICASONE PROPIONATE [Concomitant]
     Indication: ASTHMA
     Route: 055
     Dates: start: 20020201
  6. SINGULAIR [Suspect]
     Indication: ASTHMA
     Route: 048
     Dates: start: 20040324, end: 20040618
  7. SIGMART [Concomitant]
     Indication: ANGINA PECTORIS
     Route: 048
     Dates: start: 19990301
  8. PRAVASTATIN SODIUM [Concomitant]
     Indication: HYPERLIPIDAEMIA
     Route: 048
  9. SEREVENT [Concomitant]
     Indication: ASTHMA
     Route: 055
     Dates: start: 20030101

REACTIONS (3)
  - PLEURAL EFFUSION [None]
  - PNEUMONIA [None]
  - PYREXIA [None]
